FAERS Safety Report 24114718 (Version 1)
Quarter: 2024Q3

REPORT INFORMATION
  Report Type: Spontaneous
  Country: US (occurrence: US)
  Receive Date: 20240721
  Receipt Date: 20240721
  Transmission Date: 20241017
  Serious: No
  Sender: GE HEALTHCARE
  Company Number: US-GE HEALTHCARE-2024CSU004604

PATIENT
  Age: 67 Year
  Sex: Male

DRUGS (1)
  1. OMNIPAQUE [Suspect]
     Active Substance: IOHEXOL
     Indication: Diagnostic procedure
     Dosage: UNK, TOTAL
     Route: 065
     Dates: start: 20240429, end: 20240429

REACTIONS (6)
  - Pharyngeal erythema [Recovering/Resolving]
  - Throat tightness [Recovering/Resolving]
  - Throat irritation [Recovering/Resolving]
  - Blood pressure increased [Recovering/Resolving]
  - Pharyngeal swelling [Recovering/Resolving]
  - Chest discomfort [Recovering/Resolving]

NARRATIVE: CASE EVENT DATE: 20240429
